FAERS Safety Report 4807550-4 (Version None)
Quarter: 2005Q4

REPORT INFORMATION
  Report Type: 
  Country: None (occurrence: None)
  Receive Date: 20051024
  Receipt Date: 20051012
  Transmission Date: 20060501
  Serious: Yes (Hospitalization)
  Sender: FDA-Public Use
  Company Number: US-ROCHE-421081

PATIENT
  Age: 73 Year
  Sex: Female

DRUGS (5)
  1. CAPECITABINE [Suspect]
     Route: 048
     Dates: start: 20050825
  2. GEMCITABINE [Suspect]
     Route: 042
  3. LOTREL [Concomitant]
     Indication: HYPERTENSION
  4. PAROXETINE HCL [Concomitant]
     Indication: DEPRESSION
  5. ATENOLOL [Concomitant]
     Indication: HYPERTENSION

REACTIONS (2)
  - BRONCHOSPASM [None]
  - DYSPNOEA [None]
